FAERS Safety Report 15660119 (Version 2)
Quarter: 2020Q1

REPORT INFORMATION
  Report Type: Report from Study
  Country: KR (occurrence: KR)
  Receive Date: 20181127
  Receipt Date: 20200102
  Transmission Date: 20200409
  Serious: Yes (Hospitalization)
  Sender: FDA-Public Use
  Company Number: KR-CELLTRION INC.-2018KR023932

PATIENT

DRUGS (16)
  1. REMSIMA [Suspect]
     Active Substance: INFLIXIMAB
     Dosage: UNK
     Dates: start: 20190502, end: 20190502
  2. REMSIMA [Suspect]
     Active Substance: INFLIXIMAB
     Dosage: 522 MG
     Route: 042
     Dates: start: 20180402, end: 20180402
  3. REMSIMA [Suspect]
     Active Substance: INFLIXIMAB
     Dosage: 498.5 MG
     Route: 042
     Dates: start: 20190107, end: 20190107
  4. FOLIC ACID. [Concomitant]
     Active Substance: FOLIC ACID
     Indication: PROPHYLAXIS
     Dosage: 1 TAB
     Route: 048
     Dates: start: 20180109
  5. MEDILAC DS                         /07958701/ [Concomitant]
     Indication: PROPHYLAXIS
     Dosage: 1 CAPSULE
     Route: 048
     Dates: start: 20171127
  6. REMSIMA [Suspect]
     Active Substance: INFLIXIMAB
     Dosage: 507 MG
     Route: 042
     Dates: start: 20180531, end: 20180531
  7. REMSIMA [Suspect]
     Active Substance: INFLIXIMAB
     Dosage: 522 MG
     Route: 042
     Dates: start: 20180724, end: 20180724
  8. REMSIMA [Suspect]
     Active Substance: INFLIXIMAB
     Dosage: UNK
     Dates: start: 20190312, end: 20190312
  9. MESALAZINE [Concomitant]
     Active Substance: MESALAMINE
     Indication: COLITIS ULCERATIVE
     Dosage: 2000 MG, BID
     Route: 048
     Dates: start: 20180514
  10. REMSIMA [Suspect]
     Active Substance: INFLIXIMAB
     Dosage: 525.5 MG
     Route: 042
     Dates: start: 20180206, end: 20180206
  11. REMSIMA [Suspect]
     Active Substance: INFLIXIMAB
     Dosage: 519.5 MG
     Route: 042
     Dates: start: 20180919, end: 20180919
  12. REMSIMA [Suspect]
     Active Substance: INFLIXIMAB
     Dosage: 499.5 MG
     Route: 042
     Dates: start: 20181112, end: 20181112
  13. REMSIMA [Suspect]
     Active Substance: INFLIXIMAB
     Dosage: UNK
     Dates: start: 20190704, end: 20190704
  14. REMSIMA [Suspect]
     Active Substance: INFLIXIMAB
     Dosage: 512 MG
     Route: 042
     Dates: start: 20180109, end: 20180109
  15. REMSIMA [Suspect]
     Active Substance: INFLIXIMAB
     Dosage: 500MG
     Route: 042
     Dates: start: 20190829, end: 20190829
  16. REMSIMA [Suspect]
     Active Substance: INFLIXIMAB
     Indication: COLITIS ULCERATIVE
     Dosage: 512 MG
     Route: 042
     Dates: start: 20171226, end: 20171226

REACTIONS (5)
  - Overdose [Unknown]
  - Product use issue [Unknown]
  - Bile duct stone [Recovered/Resolved]
  - Breast cancer [Recovering/Resolving]
  - Biliary colic [Recovered/Resolved]

NARRATIVE: CASE EVENT DATE: 20181010
